FAERS Safety Report 13286391 (Version 1)
Quarter: 2017Q1

REPORT INFORMATION
  Report Type: Spontaneous
  Country: MX (occurrence: MX)
  Receive Date: 20170302
  Receipt Date: 20170302
  Transmission Date: 20170428
  Serious: Yes (Hospitalization, Other)
  Sender: FDA-Public Use
  Company Number: MX-JNJFOC-20170227561

PATIENT
  Sex: Female

DRUGS (3)
  1. CITICOLINE [Concomitant]
     Active Substance: CITICOLINE
     Route: 048
  2. XARELTO [Suspect]
     Active Substance: RIVAROXABAN
     Indication: ATRIAL FIBRILLATION
     Route: 048
     Dates: start: 20160923
  3. TARKA [Concomitant]
     Active Substance: TRANDOLAPRIL\VERAPAMIL HYDROCHLORIDE
     Route: 048

REACTIONS (6)
  - Cerebral haemorrhage [Unknown]
  - Head injury [Unknown]
  - Activities of daily living impaired [Unknown]
  - General physical health deterioration [Unknown]
  - Fall [Unknown]
  - Cerebral haemorrhage [Unknown]

NARRATIVE: CASE EVENT DATE: 20170215
